FAERS Safety Report 11549434 (Version 2)
Quarter: 2015Q3

REPORT INFORMATION
  Report Type: Spontaneous
  Country: IE (occurrence: IE)
  Receive Date: 20150924
  Receipt Date: 20150928
  Transmission Date: 20151125
  Serious: Yes (Hospitalization)
  Sender: FDA-Public Use
  Company Number: IE-SA-2015SA142353

PATIENT
  Age: 42 Year
  Sex: Female

DRUGS (2)
  1. LEMTRADA [Suspect]
     Active Substance: ALEMTUZUMAB
     Route: 065
     Dates: start: 2015
  2. LEMTRADA [Suspect]
     Active Substance: ALEMTUZUMAB
     Route: 065
     Dates: start: 2014

REACTIONS (2)
  - Platelet count decreased [Recovered/Resolved]
  - Lymphocyte count decreased [Unknown]

NARRATIVE: CASE EVENT DATE: 2015
